FAERS Safety Report 7655035-2 (Version None)
Quarter: 2011Q3

REPORT INFORMATION
  Report Type: 
  Country: None (occurrence: None)
  Receive Date: 20110728
  Receipt Date: 20110718
  Transmission Date: 20111222
  Serious: Yes (Hospitalization)
  Sender: FDA-Public Use
  Company Number: 11-428

PATIENT
  Age: 37 Year
  Sex: Female

DRUGS (8)
  1. VENLAFAXINE HYDROCHLORIDE [Suspect]
     Dosage: ORAL
     Route: 048
  2. ABILIFY [Concomitant]
  3. CLOZAPINE [Concomitant]
  4. IBUPROFEN [Suspect]
     Dosage: ORAL
     Route: 048
  5. CLOZAPINE [Suspect]
     Dosage: ORAL
     Route: 048
  6. ABILIFY [Suspect]
     Dosage: ORAL
     Route: 048
  7. VENLAFAXINE HYDROCHLORIDE [Concomitant]
  8. IBUPROFEN [Concomitant]

REACTIONS (2)
  - MULTIPLE DRUG OVERDOSE INTENTIONAL [None]
  - ANTIPSYCHOTIC DRUG LEVEL INCREASED [None]
